FAERS Safety Report 8817769 (Version 1)
Quarter: 2012Q4

REPORT INFORMATION
  Report Type: 
  Country: GB (occurrence: GB)
  Receive Date: 20121001
  Receipt Date: 20121001
  Transmission Date: 20130627
  Serious: Yes (Other)
  Sender: FDA-Public Use
  Company Number: GB-PFIZER INC-2012235832

PATIENT
  Age: 51 Year
  Sex: Female

DRUGS (1)
  1. SALAZOPYRIN [Suspect]
     Dosage: 1 g, 2x/day

REACTIONS (1)
  - Haematinuria [Unknown]
